FAERS Safety Report 17147615 (Version 2)
Quarter: 2019Q4

REPORT INFORMATION
  Report Type: Spontaneous
  Country: FR (occurrence: FR)
  Receive Date: 20191212
  Receipt Date: 20191218
  Transmission Date: 20200122
  Serious: Yes (Hospitalization)
  Sender: FDA-Public Use
  Company Number: FR-MYLANLABS-2019M1122088

PATIENT
  Age: 54 Year
  Sex: Female
  Weight: 61 kg

DRUGS (8)
  1. SERTRALINE ARROW [Suspect]
     Active Substance: SERTRALINE HYDROCHLORIDE
     Indication: DEPRESSION
     Dosage: 25 MILLIGRAM, QD (0-1-0)
     Route: 048
     Dates: start: 20190322, end: 20190619
  2. TERALITHE [Suspect]
     Active Substance: LITHIUM CARBONATE
     Indication: SCHIZOPHRENIA
     Dosage: 400 MILLIGRAM, QD (0-0-1)
     Route: 048
     Dates: start: 20190611, end: 20190617
  3. CLOZAPINE MYLAN [Concomitant]
     Active Substance: CLOZAPINE
     Indication: SCHIZOPHRENIA
     Dosage: 300 MILLIGRAM, QD (1-1-1)
     Route: 048
     Dates: start: 20090608, end: 20190619
  4. LOXAPAC                            /00401801/ [Suspect]
     Active Substance: LOXAPINE
     Indication: PRODUCT USED FOR UNKNOWN INDICATION
     Dosage: 25 MILLIGRAM, QD (0-0-1)
     Route: 048
     Dates: start: 20190604, end: 20190619
  5. CLOZAPINE MYLAN [Concomitant]
     Active Substance: CLOZAPINE
     Indication: SCHIZOPHRENIA
     Dosage: 125 MILLIGRAM, QD (1-2-2)
     Route: 048
     Dates: start: 20090608, end: 20190619
  6. LEPTICUR [Suspect]
     Active Substance: TROPATEPINE HYDROCHLORIDE
     Indication: PARKINSONISM
     Dosage: 10 MILLIGRAM, QD (1-0-0)
     Route: 048
     Dates: start: 20190322, end: 20190619
  7. MACROGOL 4000 MYLAN 10 G, POUDRE POUR SOLUTION BUVABLE EN SACHET-DOSE [Suspect]
     Active Substance: POLYETHYLENE GLYCOL 4000
     Indication: CONSTIPATION
     Dosage: 10 GRAM (SI BESOIN)
     Route: 048
     Dates: start: 20190322, end: 20190619
  8. DOLIPRANE [Concomitant]
     Active Substance: ACETAMINOPHEN
     Indication: PAIN
     Dosage: 1 GRAM (SI BESOIN)
     Route: 048
     Dates: start: 20190419, end: 20190619

REACTIONS (3)
  - Vomiting [Recovered/Resolved]
  - Diarrhoea [Not Recovered/Not Resolved]
  - Hyponatraemia [Recovered/Resolved with Sequelae]

NARRATIVE: CASE EVENT DATE: 20190618
